FAERS Safety Report 10730507 (Version 1)
Quarter: 2015Q1

REPORT INFORMATION
  Report Type: Spontaneous
  Country: US (occurrence: None)
  Receive Date: 20150120
  Receipt Date: 20150120
  Transmission Date: 20150721
  Serious: Yes (Other)
  Sender: FDA-Public Use
  Company Number: None

PATIENT
  Age: 37 Year
  Sex: Female
  Weight: 56.7 kg

DRUGS (1)
  1. ALBA ACNEDOTE INVISIBLE TREATMENT [Suspect]
     Active Substance: SALICYLIC ACID
     Indication: ACNE
     Dates: start: 20141010, end: 20141125

REACTIONS (3)
  - Application site vesicles [None]
  - Product quality issue [None]
  - Application site discolouration [None]

NARRATIVE: CASE EVENT DATE: 20141125
